FAERS Safety Report 9204073 (Version 1)
Quarter: 2013Q2

REPORT INFORMATION
  Report Type: Spontaneous
  Country: GB (occurrence: GB)
  Receive Date: 20130402
  Receipt Date: 20130402
  Transmission Date: 20140414
  Serious: Yes (Hospitalization)
  Sender: FDA-Public Use
  Company Number: GB-BAYER-2013-037821

PATIENT
  Age: 70 Year
  Sex: Male

DRUGS (2)
  1. ACETYLSALICYLIC ACID({=100 MG) [Suspect]
     Indication: MYOCARDIAL INFARCTION
  2. CLOPIDOGREL [Suspect]
     Indication: MYOCARDIAL INFARCTION

REACTIONS (4)
  - Haemobilia [None]
  - Cholecystitis acute [Recovering/Resolving]
  - Cholangitis [None]
  - Bile duct obstruction [None]
